FAERS Safety Report 9456003 (Version 1)
Quarter: 2013Q3

REPORT INFORMATION
  Report Type: Spontaneous
  Country: IN (occurrence: IN)
  Receive Date: 20130813
  Receipt Date: 20130813
  Transmission Date: 20140515
  Serious: Yes (Hospitalization, Other)
  Sender: FDA-Public Use
  Company Number: IN-PFIZER INC-2013232832

PATIENT
  Age: 4 Year
  Sex: Female

DRUGS (1)
  1. PHENYTOIN [Suspect]
     Dosage: UNK

REACTIONS (13)
  - Accidental exposure to product [Recovered/Resolved]
  - Toxicity to various agents [Recovered/Resolved]
  - Grand mal convulsion [Recovered/Resolved]
  - Loss of consciousness [Recovered/Resolved]
  - Eye movement disorder [Recovered/Resolved]
  - Vomiting [Recovered/Resolved]
  - Hypotonia [Recovered/Resolved]
  - Irritability [Recovered/Resolved]
  - Dysarthria [Not Recovered/Not Resolved]
  - Dysphagia [Recovered/Resolved]
  - Ataxia [Recovered/Resolved]
  - Tremor [Recovered/Resolved]
  - Nystagmus [Recovered/Resolved]
